FAERS Safety Report 5086671-8 (Version None)
Quarter: 2006Q3

REPORT INFORMATION
  Report Type: 
  Country: None (occurrence: None)
  Receive Date: 20060818
  Receipt Date: 20060809
  Transmission Date: 20061208
  Serious: Yes (Hospitalization)
  Sender: FDA-Public Use
  Company Number: HQWYE252509AUG06

PATIENT
  Age: 53 Year
  Sex: Male

DRUGS (11)
  1. AVLOCARDYL LP (PROPRANOLOL HYDROCHLORIDE, CAPSULE, EXTENDED RELEASE) [Suspect]
     Dosage: 160 MG 1X PER 1 DAY ORAL
     Route: 048
  2. MORPHINE SULFATE [Suspect]
     Dosage: ORAL
     Route: 048
     Dates: start: 20060705, end: 20060710
  3. ALDACTONE [Suspect]
     Dosage: 75 MG 1X PER 1 DAY ORAL
     Route: 048
  4. DAFALGAN CODEINE (CODEINE PHOSPHATE/PARACETAMOL) [Suspect]
     Dosage: 3 DOSAGE FORM 1X PER 1 DAY ORAL
     Route: 048
     Dates: start: 20060705, end: 20060710
  5. PENTOXIFYLLINE [Suspect]
     Indication: CIRRHOSIS ALCOHOLIC
     Dosage: 3 DOSAGE FORM 1X PER 1 DAY ORAL
     Route: 048
     Dates: start: 20060106, end: 20060713
  6. STABLON (TIANEPTINE , TABLET) [Suspect]
     Indication: DEPRESSION
     Dosage: 37.5 MG 1X PER 1 DAY ORAL
     Route: 048
  7. LANTUS [Concomitant]
  8. DUPHALAC [Concomitant]
  9. VITAMIN B1 AND B6 (PYRIDOXINE/THIAMINE) [Concomitant]
  10. NOVORAPID (INSULIN ASPART) [Concomitant]
  11. CLAMOXYL (AMOXICILLIN SODIUM) [Concomitant]

REACTIONS (4)
  - HEPATIC ENCEPHALOPATHY [None]
  - INFECTION [None]
  - PAIN [None]
  - PSYCHOMOTOR RETARDATION [None]
